FAERS Safety Report 10759450 (Version 1)
Quarter: 2015Q1

REPORT INFORMATION
  Report Type: Report from Study
  Country: US (occurrence: US)
  Receive Date: 20150203
  Receipt Date: 20150203
  Transmission Date: 20150721
  Serious: No
  Sender: FDA-Public Use
  Company Number: US-GLAXOSMITHKLINE-US2014GSK049169

PATIENT
  Sex: Female

DRUGS (2)
  1. BELIMUMAB SOLUTION FOR INJECTION [Suspect]
     Active Substance: BELIMUMAB
     Indication: SYSTEMIC LUPUS ERYTHEMATOSUS
  2. BELIMUMAB POWDER FOR INFUSION [Suspect]
     Active Substance: BELIMUMAB
     Indication: SYSTEMIC LUPUS ERYTHEMATOSUS
     Dosage: UNK
     Dates: start: 201305

REACTIONS (2)
  - Mood swings [Unknown]
  - Injection site pain [Not Recovered/Not Resolved]
